FAERS Safety Report 7648038-5 (Version None)
Quarter: 2011Q3

REPORT INFORMATION
  Report Type: 
  Country: None (occurrence: None)
  Receive Date: 20110801
  Receipt Date: 20110728
  Transmission Date: 20111222
  Serious: Yes (Disabling)
  Sender: FDA-Public Use
  Company Number: SE-BAYER-2011-064092

PATIENT
  Sex: Female

DRUGS (1)
  1. BETASERON [Suspect]
     Indication: MULTIPLE SCLEROSIS
     Dosage: 250 ?G, Q72HR
     Route: 058
     Dates: start: 20110706

REACTIONS (4)
  - PAIN [None]
  - MALAISE [None]
  - PARAESTHESIA [None]
  - HYPOAESTHESIA [None]
